FAERS Safety Report 15716418 (Version 3)
Quarter: 2018Q4

REPORT INFORMATION
  Report Type: Spontaneous
  Country: JP (occurrence: JP)
  Receive Date: 20181213
  Receipt Date: 20181228
  Transmission Date: 20190205
  Serious: Yes (Death, Life-Threatening, Hospitalization, Other)
  Sender: FDA-Public Use
  Company Number: JP-009507513-1812JPN000582J

PATIENT
  Age: 64 Year
  Sex: Male
  Weight: 56 kg

DRUGS (8)
  1. KEYTRUDA [Suspect]
     Active Substance: PEMBROLIZUMAB
     Indication: LUNG ADENOCARCINOMA STAGE IV
     Dosage: 200 MILLIGRAM, Q3W
     Route: 041
     Dates: start: 20180928, end: 20180928
  2. TS-1 [Suspect]
     Active Substance: GIMERACIL\OTERACIL\TEGAFUR
     Indication: LUNG ADENOCARCINOMA STAGE IV
     Dosage: 120 MILLIGRAM, QD
     Route: 048
     Dates: start: 20181023, end: 20181108
  3. CALONAL [Concomitant]
     Active Substance: ACETAMINOPHEN
     Dosage: 500 MILLIGRAM, TID
     Route: 048
     Dates: end: 20181109
  4. BAYASPIRIN [Concomitant]
     Active Substance: ASPIRIN
     Indication: MYOCARDIAL INFARCTION
     Dosage: 100 MILLIGRAM, QD
     Route: 048
     Dates: end: 20181109
  5. DILTIAZEM HYDROCHLORIDE. [Concomitant]
     Active Substance: DILTIAZEM HYDROCHLORIDE
     Indication: MYOCARDIAL INFARCTION
     Dosage: 100 MILLIGRAM, QD
     Route: 048
     Dates: end: 20181109
  6. DENOTAS CHEWABLE COMBINATION TABLETS [Concomitant]
     Active Substance: CALCIUM CARBONATE\CHOLECALCIFEROL\MAGNESIUM CARBONATE
     Dosage: 2 DOSAGE FORM, BID
     Route: 048
     Dates: end: 20181109
  7. PITAVASTATIN CALCIUM [Concomitant]
     Active Substance: PITAVASTATIN CALCIUM
     Indication: HYPERCHOLESTEROLAEMIA
     Dosage: 2 MILLIGRAM, QD
     Route: 048
     Dates: end: 20181109
  8. TRAZENTA [Concomitant]
     Active Substance: LINAGLIPTIN
     Indication: DIABETES MELLITUS
     Dosage: 5 MILLIGRAM, QD
     Route: 048
     Dates: end: 20181109

REACTIONS (15)
  - Malignant neoplasm progression [Unknown]
  - Renal impairment [Unknown]
  - Lip haemorrhage [Unknown]
  - C-reactive protein increased [Unknown]
  - Disseminated intravascular coagulation [Unknown]
  - Rash [Not Recovered/Not Resolved]
  - Haemoglobin decreased [Unknown]
  - Dehydration [Fatal]
  - Septic shock [Fatal]
  - Multiple organ dysfunction syndrome [Unknown]
  - Hepatic enzyme decreased [Unknown]
  - Stomatitis [Unknown]
  - Enanthema [Not Recovered/Not Resolved]
  - Bacteraemia [Unknown]
  - Febrile neutropenia [Fatal]

NARRATIVE: CASE EVENT DATE: 20181023
